FAERS Safety Report 22594440 (Version 1)
Quarter: 2023Q2

REPORT INFORMATION
  Report Type: Spontaneous
  Country: US (occurrence: None)
  Receive Date: 20230612
  Receipt Date: 20230612
  Transmission Date: 20230722
  Serious: Yes (Life-Threatening)
  Sender: FDA-Public Use
  Company Number: None

PATIENT
  Age: 54 Year
  Sex: Male
  Weight: 108 kg

DRUGS (6)
  1. CIPROFLOXACIN [Suspect]
     Active Substance: CIPROFLOXACIN
     Indication: Sinusitis
     Dosage: OTHER QUANTITY : 1 CAPSULE(S);?FREQUENCY : TWICE A DAY;?
     Route: 048
     Dates: start: 20230606, end: 20230610
  2. KLONOPIN [Suspect]
     Active Substance: CLONAZEPAM
  3. LISINOPRIL [Concomitant]
     Active Substance: LISINOPRIL
  4. ABILIFY [Concomitant]
     Active Substance: ARIPIPRAZOLE
  5. VITAMINS [Concomitant]
     Active Substance: VITAMINS
  6. DDAVP [Concomitant]
     Active Substance: DESMOPRESSIN ACETATE

REACTIONS (8)
  - Somnolence [None]
  - Cough [None]
  - Anxiety [None]
  - Sinusitis [None]
  - Benzodiazepine drug level increased [None]
  - Eye movement disorder [None]
  - Movement disorder [None]
  - Aphasia [None]

NARRATIVE: CASE EVENT DATE: 20230609
